FAERS Safety Report 5386828-2 (Version None)
Quarter: 2007Q3

REPORT INFORMATION
  Report Type: 
  Country: None (occurrence: None)
  Receive Date: 20070713
  Receipt Date: 20070702
  Transmission Date: 20080115
  Serious: Yes (Hospitalization, Disabling, Other)
  Sender: FDA-Public Use
  Company Number: US-PFIZER INC-2007004805

PATIENT
  Sex: Male
  Weight: 86.2 kg

DRUGS (3)
  1. CELEBREX [Suspect]
     Indication: PAIN
     Route: 048
     Dates: start: 20000626, end: 20041201
  2. VIOXX [Suspect]
     Indication: INFLAMMATION
     Dates: start: 20000302, end: 20040930
  3. VIOXX [Suspect]
     Indication: PAIN

REACTIONS (3)
  - CARDIAC DISORDER [None]
  - CARDIOVASCULAR DISORDER [None]
  - MYOCARDIAL INFARCTION [None]
